FAERS Safety Report 5807588-4 (Version None)
Quarter: 2008Q3

REPORT INFORMATION
  Report Type: 
  Country: None (occurrence: None)
  Receive Date: 20080711
  Receipt Date: 20030516
  Transmission Date: 20090109
  Serious: Yes (Hospitalization, Other)
  Sender: FDA-Public Use
  Company Number: US-BAXTER-2007BH010098

PATIENT
  Age: 76 Year
  Sex: Female
  Weight: 47 kg

DRUGS (1)
  1. 0.9% SODIUM CHLORIDE IRRIGATION IN PLASTIC CONTAINER [Suspect]
     Indication: DECUBITUS ULCER
     Route: 065
     Dates: start: 20030516

REACTIONS (3)
  - DISORIENTATION [None]
  - MEDICATION TAMPERING [None]
  - WOUND INFECTION [None]
